FAERS Safety Report 8486068-4 (Version None)
Quarter: 2012Q3

REPORT INFORMATION
  Report Type: 
  Country: None (occurrence: None)
  Receive Date: 20120703
  Receipt Date: 20120618
  Transmission Date: 20120928
  Serious: Yes (Other)
  Sender: FDA-Public Use
  Company Number: US-WATSON-2012-10808

PATIENT
  Sex: Female

DRUGS (2)
  1. VICODIN [Suspect]
     Indication: HAEMORRHOIDS
  2. VICODIN [Suspect]
     Indication: BACK PAIN
     Dosage: UNK
     Route: 065
     Dates: start: 19920101

REACTIONS (4)
  - IMPRISONMENT [None]
  - FATIGUE [None]
  - MALAISE [None]
  - DEPENDENCE [None]
